FAERS Safety Report 20368712 (Version 1)
Quarter: 2022Q1

REPORT INFORMATION
  Report Type: Report from Study
  Country: IL (occurrence: None)
  Receive Date: 20220124
  Receipt Date: 20220124
  Transmission Date: 20220423
  Serious: Yes (Other)
  Sender: FDA-Public Use
  Company Number: 2022A025392

PATIENT
  Age: 17761 Day
  Sex: Female
  Weight: 70 kg

DRUGS (1)
  1. ANIFROLUMAB [Suspect]
     Active Substance: ANIFROLUMAB
     Route: 041
     Dates: start: 20210223

REACTIONS (1)
  - Psoriasis [Unknown]
